FAERS Safety Report 7927202 (Version 3)
Quarter: 2013Q3

REPORT INFORMATION
  Report Type: Spontaneous
  Country: US (occurrence: US)
  Receive Date: 20110502
  Receipt Date: 20130813
  Transmission Date: 20140515
  Serious: Yes (Other)
  Sender: FDA-Public Use
  Company Number: US-ROCHE-754164

PATIENT
  Age: 20 Year
  Sex: Female
  Weight: 58.1 kg

DRUGS (7)
  1. ACCUTANE [Suspect]
     Indication: ACNE
     Route: 048
  2. ACCUTANE [Suspect]
     Route: 048
  3. SUMYCIN [Concomitant]
     Route: 048
  4. RETIN-A [Concomitant]
     Route: 065
  5. MINOCIN [Concomitant]
     Route: 048
  6. AMPICILLIN [Concomitant]
     Route: 048
  7. NECON [Concomitant]

REACTIONS (10)
  - Crohn^s disease [Unknown]
  - Inflammatory bowel disease [Unknown]
  - Emotional distress [Unknown]
  - Colitis ulcerative [Unknown]
  - Rectal polyp [Unknown]
  - Irritable bowel syndrome [Unknown]
  - Alopecia [Unknown]
  - Lip dry [Unknown]
  - Nasal dryness [Unknown]
  - Dry eye [Unknown]
